FAERS Safety Report 7074715-3 (Version None)
Quarter: 2010Q4

REPORT INFORMATION
  Report Type: 
  Country: None (occurrence: None)
  Receive Date: 20101029
  Receipt Date: 20101018
  Transmission Date: 20110411
  Serious: Yes (Life-Threatening, Hospitalization)
  Sender: FDA-Public Use
  Company Number: DE-MYLANLABS-2009S1005848

PATIENT
  Age: 68 Year
  Sex: Female
  Weight: 102 kg

DRUGS (12)
  1. TORSEMIDE [Interacting]
     Indication: HYPERTENSION
     Route: 048
     Dates: start: 20041101
  2. TORSEMIDE [Interacting]
     Route: 048
     Dates: start: 20080508, end: 20080513
  3. SPIRONOLACTONE [Suspect]
     Indication: CARDIAC FAILURE
     Route: 048
     Dates: start: 20070101, end: 20080508
  4. RAMICARD [Interacting]
     Indication: HYPERTENSION
     Route: 048
     Dates: start: 20041101, end: 20080508
  5. XIPAMIDE [Interacting]
     Indication: HYPERTENSION
     Route: 048
     Dates: start: 20070101, end: 20080508
  6. BISOBETA [Interacting]
     Indication: CORONARY ARTERY DISEASE
     Route: 048
     Dates: start: 20041101, end: 20080407
  7. DOLORMIN /00109201/ [Interacting]
     Indication: PAIN
     Route: 048
  8. ASPIRIN [Interacting]
     Indication: CORONARY ARTERY DISEASE
     Route: 048
     Dates: start: 20040101, end: 20080507
  9. ACTRAPID [Concomitant]
     Indication: TYPE 2 DIABETES MELLITUS
     Dosage: 26-22-24 IU
     Route: 058
     Dates: start: 20050101
  10. INSULIN PROTAPHAN HUMAN [Concomitant]
     Indication: TYPE 2 DIABETES MELLITUS
     Route: 058
     Dates: start: 20050101
  11. PRAVASTATIN [Concomitant]
     Indication: HYPERLIPIDAEMIA
     Route: 048
     Dates: start: 20040101
  12. PLAVIX [Concomitant]
     Indication: CORONARY ARTERY DISEASE
     Route: 048
     Dates: start: 20080301

REACTIONS (2)
  - DRUG INTERACTION [None]
  - RENAL FAILURE ACUTE [None]
